FAERS Safety Report 8954263 (Version 1)
Quarter: 2012Q4

REPORT INFORMATION
  Report Type: 
  Country: GB (occurrence: GB)
  Receive Date: 20121207
  Receipt Date: 20121207
  Transmission Date: 20130627
  Serious: Yes (Hospitalization, Other)
  Sender: FDA-Public Use
  Company Number: PHFR2012GB006315

PATIENT
  Age: 64 Year
  Sex: Female

DRUGS (4)
  1. DICLOFENAC [Suspect]
     Dosage: 50 mg, TID
     Dates: start: 20090210, end: 20110210
  2. CELECOXIB [Concomitant]
     Indication: OSTEOARTHRITIS
     Dosage: 200 mg, BID
     Route: 048
     Dates: start: 20090113, end: 20090210
  3. NEXUM [Concomitant]
     Dosage: 40 mg, QD
  4. BISACODYL [Concomitant]
     Dosage: 5 mg, QD
     Dates: start: 20091120

REACTIONS (3)
  - Haematemesis [Recovered/Resolved]
  - Abdominal pain upper [Recovered/Resolved]
  - Hepatic cyst [Unknown]
